FAERS Safety Report 6245002-8 (Version None)
Quarter: 2009Q2

REPORT INFORMATION
  Report Type: 
  Country: None (occurrence: None)
  Receive Date: 20090619
  Receipt Date: 20090303
  Transmission Date: 20091009
  Serious: No
  Sender: FDA-Public Use
  Company Number: ALL1-2009-00567

PATIENT
  Age: 24 Year
  Sex: Male
  Weight: 104.3 kg

DRUGS (6)
  1. VYVANSE [Suspect]
     Indication: ATTENTION DEFICIT/HYPERACTIVITY DISORDER
     Dosage: 20 MG, 1X/DAY:QD, ORAL; 60 MG, 1X/DAY: QD, ORAL
     Route: 048
     Dates: start: 20090225, end: 20090228
  2. VYVANSE [Suspect]
     Indication: ATTENTION DEFICIT/HYPERACTIVITY DISORDER
     Dosage: 20 MG, 1X/DAY:QD, ORAL; 60 MG, 1X/DAY: QD, ORAL
     Route: 048
     Dates: start: 20090228, end: 20090303
  3. DEPAKOTE [Concomitant]
  4. SEROQUEL [Concomitant]
  5. PAXIL [Concomitant]
  6. SUBOXONE [Concomitant]

REACTIONS (2)
  - SEDATION [None]
  - SOMNOLENCE [None]
